FAERS Safety Report 15643064 (Version 1)
Quarter: 2018Q4

REPORT INFORMATION
  Report Type: Report from Study
  Country: US (occurrence: US)
  Receive Date: 20181121
  Receipt Date: 20181121
  Transmission Date: 20190205
  Serious: Yes (Hospitalization, Other)
  Sender: FDA-Public Use
  Company Number: US-BAYER-2018-149674

PATIENT
  Age: 66 Year
  Sex: Male

DRUGS (3)
  1. NEXAVAR [Suspect]
     Active Substance: SORAFENIB
     Indication: HEPATOCELLULAR CARCINOMA
     Dosage: 200 MG, BID
     Dates: start: 20181004
  2. NEXAVAR [Suspect]
     Active Substance: SORAFENIB
     Indication: HEPATOCELLULAR CARCINOMA
     Dosage: 200 MG NIGHTLYX 3 DAYS
     Route: 048
     Dates: start: 20180806, end: 20180808
  3. NEXAVAR [Suspect]
     Active Substance: SORAFENIB
     Indication: HEPATOCELLULAR CARCINOMA
     Dosage: 200 MG, BID
     Route: 048
     Dates: start: 20180809, end: 2018

REACTIONS (35)
  - Umbilical hernia repair [None]
  - Abdominal wall operation [None]
  - Abdominal distension [Not Recovered/Not Resolved]
  - Nausea [Recovered/Resolved with Sequelae]
  - Pain [Not Recovered/Not Resolved]
  - Asthenia [Not Recovered/Not Resolved]
  - Muscle spasms [None]
  - Skin lesion [None]
  - Pre-existing condition improved [None]
  - Asthenia [None]
  - Rash macular [None]
  - Dysphonia [None]
  - Splenomegaly [None]
  - Oedema peripheral [Recovered/Resolved]
  - Muscle atrophy [None]
  - Pain in extremity [None]
  - Product dose omission [None]
  - Off label use [None]
  - Red blood cell count decreased [Not Recovered/Not Resolved]
  - Weight decreased [None]
  - Fatigue [None]
  - Abdominal pain upper [Recovering/Resolving]
  - Varices oesophageal [None]
  - Nausea [None]
  - Early satiety [Recovering/Resolving]
  - Dry skin [None]
  - Abdominal pain [None]
  - Arthralgia [Not Recovered/Not Resolved]
  - Rash erythematous [None]
  - Blood pressure increased [Not Recovered/Not Resolved]
  - Platelet count decreased [Not Recovered/Not Resolved]
  - Dry skin [None]
  - Gastrointestinal motility disorder [Not Recovered/Not Resolved]
  - White blood cell count decreased [Not Recovered/Not Resolved]
  - Decreased appetite [Recovering/Resolving]

NARRATIVE: CASE EVENT DATE: 2018
